FAERS Safety Report 5838011-1 (Version None)
Quarter: 2008Q3

REPORT INFORMATION
  Report Type: 
  Country: None (occurrence: None)
  Receive Date: 20080808
  Receipt Date: 20080220
  Transmission Date: 20090109
  Serious: No
  Sender: FDA-Public Use
  Company Number: A0710787A

PATIENT
  Age: 32 Year
  Sex: Male

DRUGS (1)
  1. PAXIL [Suspect]
     Indication: ANXIETY DISORDER
     Dosage: 60MG PER DAY
     Route: 048
     Dates: start: 20030101, end: 20070101

REACTIONS (5)
  - BURNING SENSATION [None]
  - CHEST DISCOMFORT [None]
  - MUSCULOSKELETAL STIFFNESS [None]
  - PARAESTHESIA [None]
  - TENSION HEADACHE [None]
